FAERS Safety Report 8201285-6 (Version None)
Quarter: 2012Q1

REPORT INFORMATION
  Report Type: 
  Country: None (occurrence: None)
  Receive Date: 20120312
  Receipt Date: 20120309
  Transmission Date: 20120608
  Serious: Yes (Life-Threatening, Hospitalization)
  Sender: FDA-Public Use
  Company Number: PHHO2012TR003614

PATIENT
  Sex: Male
  Weight: 32 kg

DRUGS (4)
  1. ILARIS [Suspect]
     Indication: JUVENILE ARTHRITIS
     Dosage: 0.80 ML, UNK
     Route: 058
     Dates: start: 20111130
  2. ILARIS [Suspect]
     Dosage: 0.86 ML, UNK
     Route: 058
     Dates: start: 20111226
  3. ILARIS [Suspect]
     Dosage: 0.88 ML, UNK
     Route: 058
     Dates: start: 20120222
  4. ILARIS [Suspect]
     Dosage: 0.85 ML, UNK
     Route: 058
     Dates: start: 20120123

REACTIONS (1)
  - HISTIOCYTOSIS HAEMATOPHAGIC [None]
